FAERS Safety Report 25160662 (Version 1)
Quarter: 2025Q2

REPORT INFORMATION
  Report Type: Spontaneous
  Country: US (occurrence: None)
  Receive Date: 20250403
  Receipt Date: 20250403
  Transmission Date: 20250716
  Serious: Yes (Hospitalization)
  Sender: FDA-CTU
  Company Number: None

PATIENT
  Age: 73 Year
  Sex: Female
  Weight: 45.5 kg

DRUGS (1)
  1. TECVAYLI [Suspect]
     Active Substance: TECLISTAMAB-CQYV
     Indication: Plasma cell myeloma
     Dates: start: 20250325

REACTIONS (3)
  - Immune effector cell-associated neurotoxicity syndrome [None]
  - Thrombocytopenia [None]
  - Tremor [None]

NARRATIVE: CASE EVENT DATE: 20250331
